FAERS Safety Report 9686744 (Version 2)
Quarter: 2014Q1

REPORT INFORMATION
  Report Type: Spontaneous
  Country: US (occurrence: US)
  Receive Date: 20131113
  Receipt Date: 20140115
  Transmission Date: 20141002
  Serious: No
  Sender: FDA-Public Use
  Company Number: US-PFIZER INC-2013321963

PATIENT
  Age: 57 Year
  Sex: Female

DRUGS (4)
  1. PREMARIN [Suspect]
     Dosage: UNK
  2. XALATAN [Suspect]
     Dosage: UNK
  3. EFFEXOR XR [Suspect]
     Indication: DEPRESSION
     Dosage: (75MG ONE TIME A DAY AND 150MG TWO TIMES A DAY], 3X/DAY
  4. WELLBUTRIN [Concomitant]
     Indication: DEPRESSION
     Dosage: 150 MG, 1X/DAY

REACTIONS (4)
  - Arthritis [Unknown]
  - Muscle spasms [Unknown]
  - Conversion disorder [Unknown]
  - Panic reaction [Unknown]
